FAERS Safety Report 8168688-X (Version None)
Quarter: 2012Q1

REPORT INFORMATION
  Report Type: 
  Country: None (occurrence: None)
  Receive Date: 20120227
  Receipt Date: 20120217
  Transmission Date: 20120608
  Serious: Yes (Hospitalization, Other)
  Sender: FDA-Public Use
  Company Number: PHEH2011US012725

PATIENT
  Sex: Female

DRUGS (25)
  1. LISINOPRIL [Concomitant]
     Dosage: 10 MG, QD
  2. PAXIL [Concomitant]
     Dosage: 20 MG, QD
  3. TRAZODONE HCL [Concomitant]
     Dosage: 100 MG, QD
  4. PRILOSEC [Concomitant]
     Dosage: UNK UKN, UNK
  5. HYDROCODONE [Concomitant]
     Dosage: UNK UKN, UNK
  6. VITAMIN D [Concomitant]
     Dosage: UNK UKN, UNK
  7. ZOFRAN [Concomitant]
     Dosage: UNK UKN, UNK
  8. CALCIUM WITH VITAMIN D [Concomitant]
     Dosage: 600 MG, BID
  9. XANAX [Concomitant]
     Dosage: 0.25 MG, PRN
  10. PREMARIN [Concomitant]
     Dosage: UNK UKN, UNK
  11. XOPENEX [Concomitant]
     Dosage: UNK UKN, UNK
  12. GILENYA [Suspect]
     Indication: MULTIPLE SCLEROSIS
     Dosage: 0.5 MG, QD
     Route: 048
     Dates: start: 20111206, end: 20111215
  13. LEVOFLOXACIN [Concomitant]
     Dosage: UNK UKN, UNK
  14. OMEPRAZOLE [Concomitant]
     Dosage: 40 MG, QD
  15. FAMPRIDINE [Concomitant]
     Dosage: 10 MG, Q12H
  16. TIZANIDINE HCL [Concomitant]
     Dosage: 4 MG, QD
  17. ACETAMINOPHEN [Concomitant]
     Dosage: UNK UKN, UNK
  18. CALCIUM [Concomitant]
     Dosage: UNK UKN, UNK
  19. DOCUSATE SODIUM [Concomitant]
     Dosage: UNK UKN, UNK
  20. MIRALAX [Concomitant]
     Dosage: UNK UKN, UNK
  21. MOTRIN [Concomitant]
     Dosage: UNK UKN, UNK
  22. ESTRADIOL [Concomitant]
     Dosage: 1 MG, QD
  23. COLACE [Concomitant]
     Dosage: UNK UKN, UNK
  24. VICODIN [Concomitant]
     Dosage: UNK UKN, UNK
  25. PROTONIX [Concomitant]
     Dosage: UNK UKN, UNK

REACTIONS (34)
  - NUCLEAR MAGNETIC RESONANCE IMAGING ABNORMAL [None]
  - ATELECTASIS [None]
  - HAEMOGLOBIN DECREASED [None]
  - DYSPNOEA [None]
  - CONFUSIONAL STATE [None]
  - COGNITIVE DISORDER [None]
  - COUGH [None]
  - DEPRESSION [None]
  - ASTHENIA [None]
  - MEMORY IMPAIRMENT [None]
  - HYPERTENSION [None]
  - ANAEMIA [None]
  - VOMITING [None]
  - BLOOD CALCIUM DECREASED [None]
  - SOMNOLENCE [None]
  - HYPOAESTHESIA [None]
  - VISION BLURRED [None]
  - BLOOD PRESSURE INCREASED [None]
  - RED BLOOD CELL COUNT DECREASED [None]
  - MULTIPLE SCLEROSIS RELAPSE [None]
  - CONVULSION [None]
  - HEADACHE [None]
  - CENTRAL NERVOUS SYSTEM LESION [None]
  - PARAESTHESIA [None]
  - WHITE BLOOD CELL COUNT INCREASED [None]
  - BLOOD POTASSIUM DECREASED [None]
  - BRAIN OEDEMA [None]
  - DYSPHAGIA [None]
  - DISTURBANCE IN ATTENTION [None]
  - HAEMATOCRIT DECREASED [None]
  - POSTERIOR REVERSIBLE ENCEPHALOPATHY SYNDROME [None]
  - DYSARTHRIA [None]
  - CONSTIPATION [None]
  - NAUSEA [None]
